FAERS Safety Report 24331974 (Version 3)
Quarter: 2025Q3

REPORT INFORMATION
  Report Type: Spontaneous
  Country: CN (occurrence: CN)
  Receive Date: 20240918
  Receipt Date: 20250809
  Transmission Date: 20251020
  Serious: Yes (Other)
  Sender: ALEXION PHARMACEUTICALS
  Company Number: 2024A211339

PATIENT
  Age: 50 Year
  Sex: Male
  Weight: 77.5 kg

DRUGS (1)
  1. DAPAGLIFLOZIN [Suspect]
     Active Substance: DAPAGLIFLOZIN
     Indication: Diabetes mellitus
     Dosage: 10 MILLIGRAM, QD
     Dates: start: 20240828, end: 20240904

REACTIONS (1)
  - Urine ketone body present [Recovering/Resolving]

NARRATIVE: CASE EVENT DATE: 20240903
